FAERS Safety Report 5627928-9 (Version None)
Quarter: 2008Q1

REPORT INFORMATION
  Report Type: 
  Country: None (occurrence: None)
  Receive Date: 20080215
  Receipt Date: 20080205
  Transmission Date: 20080703
  Serious: Yes (Hospitalization)
  Sender: FDA-Public Use
  Company Number: GB-ROCHE-545849

PATIENT
  Age: 21 Year
  Sex: Female
  Weight: 89.8 kg

DRUGS (1)
  1. ORLISTAT [Suspect]
     Indication: OBESITY
     Dosage: STOP DATE: BEFORE CHRISTMAS
     Route: 048
     Dates: start: 20071029

REACTIONS (1)
  - GASTRIC INFECTION [None]
